FAERS Safety Report 12209405 (Version 2)
Quarter: 2016Q1

REPORT INFORMATION
  Report Type: Report from Study
  Country: DE (occurrence: DE)
  Receive Date: 20160324
  Receipt Date: 20160330
  Transmission Date: 20160526
  Serious: Yes (Life-Threatening, Hospitalization, Disabling, Other)
  Sender: FDA-Public Use
  Company Number: DE-ABBVIE-16K-062-1590011-00

PATIENT
  Age: 50 Year
  Sex: Female

DRUGS (5)
  1. HUMIRA [Suspect]
     Active Substance: ADALIMUMAB
     Route: 058
  2. HUMIRA [Suspect]
     Active Substance: ADALIMUMAB
     Indication: CROHN^S DISEASE
     Route: 058
     Dates: start: 20151208, end: 20160120
  3. IODIDE [Concomitant]
     Indication: PRODUCT USED FOR UNKNOWN INDICATION
  4. IBUPROFEN. [Concomitant]
     Active Substance: IBUPROFEN
     Indication: PRODUCT USED FOR UNKNOWN INDICATION
  5. NACL [Concomitant]
     Active Substance: SODIUM CHLORIDE
     Indication: PRODUCT USED FOR UNKNOWN INDICATION

REACTIONS (7)
  - Malaise [Recovering/Resolving]
  - Intestinal perforation [Recovering/Resolving]
  - Wound [Recovering/Resolving]
  - Weight decreased [Recovering/Resolving]
  - Asthenia [Recovering/Resolving]
  - Purulent discharge [Recovering/Resolving]
  - Abdominal wound dehiscence [Recovering/Resolving]

NARRATIVE: CASE EVENT DATE: 20160120
